FAERS Safety Report 10049977 (Version 2)
Quarter: 2014Q2

REPORT INFORMATION
  Report Type: Report from Study
  Country: CA (occurrence: CA)
  Receive Date: 20140401
  Receipt Date: 20140530
  Transmission Date: 20141212
  Serious: Yes (Other)
  Sender: FDA-Public Use
  Company Number: CA-JNJFOC-20140316747

PATIENT
  Sex: Male
  Weight: 112 kg

DRUGS (1)
  1. REMICADE [Suspect]
     Indication: CROHN^S DISEASE
     Route: 042
     Dates: start: 2007

REACTIONS (5)
  - Osteonecrosis [Unknown]
  - Skin ulcer [Unknown]
  - Peripheral venous disease [Unknown]
  - Skin hyperpigmentation [Unknown]
  - Pruritus [Unknown]
